FAERS Safety Report 9032618 (Version 2)
Quarter: 2013Q1

REPORT INFORMATION
  Report Type: Report from Study
  Country: AU (occurrence: AU)
  Receive Date: 20130122
  Receipt Date: 20130201
  Transmission Date: 20140127
  Serious: Yes (Hospitalization, Other)
  Sender: FDA-Public Use
  Company Number: PHHY2013AU002361

PATIENT
  Age: 55 Year
  Sex: Female

DRUGS (1)
  1. CLOZARIL [Suspect]
     Dosage: 400 MG
     Dates: start: 20121205

REACTIONS (7)
  - C-reactive protein increased [Unknown]
  - Troponin increased [Unknown]
  - Red cell distribution width increased [Unknown]
  - Drug level decreased [Unknown]
  - Blood creatine phosphokinase increased [Unknown]
  - Platelet count increased [Unknown]
  - Gamma-glutamyltransferase increased [Unknown]
